FAERS Safety Report 11099091 (Version 2)
Quarter: 2015Q3

REPORT INFORMATION
  Report Type: Report from Study
  Country: US (occurrence: None)
  Receive Date: 20150506
  Receipt Date: 20150716
  Transmission Date: 20151125
  Serious: Yes (Other)
  Sender: FDA-Public Use
  Company Number: ADR-2015-00875

PATIENT
  Age: 50 Year
  Sex: Female

DRUGS (3)
  1. DILAUDID [Suspect]
     Active Substance: HYDROMORPHONE HYDROCHLORIDE
  2. COMPOUNDED BACLOFEN INTRATHECAL [Suspect]
     Active Substance: BACLOFEN
  3. BUPIVACAINE (30 MG/ML) [Suspect]
     Active Substance: BUPIVACAINE

REACTIONS (2)
  - Arachnoiditis [None]
  - Device infusion issue [None]
